FAERS Safety Report 6932012-8 (Version None)
Quarter: 2010Q3

REPORT INFORMATION
  Report Type: 
  Country: None (occurrence: None)
  Receive Date: 20100816
  Receipt Date: 20100802
  Transmission Date: 20110219
  Serious: Yes (Other)
  Sender: FDA-Public Use
  Company Number: US-1182863

PATIENT
  Sex: Female

DRUGS (3)
  1. SYSTANE EYE DROPS [Suspect]
     Indication: DRY EYE
     Dosage: (OPHTHALMIC)
     Route: 047
     Dates: start: 20100701, end: 20100701
  2. OPTI TEARS EYE DROPS [Suspect]
     Indication: DRY EYE
     Dosage: (OPHTHALMIC)
     Route: 047
     Dates: start: 20100101, end: 20100701
  3. OPTI FREE ESTUCHE [Suspect]
     Indication: CONTACT LENS THERAPY
     Dates: start: 20100101, end: 20100701

REACTIONS (1)
  - UVEITIS [None]
